FAERS Safety Report 8995432 (Version 1)
Quarter: 2013Q1

REPORT INFORMATION
  Report Type: Spontaneous
  Country: US (occurrence: US)
  Receive Date: 20130103
  Receipt Date: 20130103
  Transmission Date: 20140127
  Serious: No
  Sender: FDA-Public Use
  Company Number: US-ABBOTT-12P-163-0919397-00

PATIENT
  Sex: Female

DRUGS (4)
  1. SYNTHROID [Suspect]
     Indication: HYPOTHYROIDISM
     Dosage: 137 MCG DAILY
     Dates: start: 201202
  2. B12 [Concomitant]
     Indication: PERNICIOUS ANAEMIA
  3. VITAMIN D [Concomitant]
     Indication: VITAMIN D DEFICIENCY
  4. IRON [Concomitant]
     Indication: ANAEMIA

REACTIONS (2)
  - Hair colour changes [Not Recovered/Not Resolved]
  - Hair colour changes [Not Recovered/Not Resolved]
